FAERS Safety Report 19825571 (Version 1)
Quarter: 2021Q3

REPORT INFORMATION
  Report Type: Spontaneous
  Country: US (occurrence: US)
  Receive Date: 20210914
  Receipt Date: 20210914
  Transmission Date: 20211014
  Serious: Yes (Hospitalization)
  Sender: FDA-Public Use
  Company Number: None

PATIENT
  Age: 47 Year
  Sex: Male

DRUGS (3)
  1. MYCOPHENOLATE [Suspect]
     Active Substance: MYCOPHENOLIC ACID
     Indication: ORGAN TRANSPLANT
     Route: 048
     Dates: start: 20210629
  2. TACROLIMUS. [Suspect]
     Active Substance: TACROLIMUS
     Indication: ORGAN TRANSPLANT
     Dosage: ?          OTHER FREQUENCY:@9AM;?
     Route: 048
     Dates: start: 20210629
  3. TACROLIMUS 0.5 [Concomitant]
     Active Substance: TACROLIMUS
     Dates: start: 20210629

REACTIONS (2)
  - Hospitalisation [None]
  - Therapy interrupted [None]
